FAERS Safety Report 5526781-1 (Version None)
Quarter: 2007Q4

REPORT INFORMATION
  Report Type: 
  Country: None (occurrence: None)
  Receive Date: 20071127
  Receipt Date: 20071119
  Transmission Date: 20080405
  Serious: Yes (Death, Hospitalization, Other)
  Sender: FDA-Public Use
  Company Number: DE-ROCHE-530709

PATIENT
  Age: 63 Year
  Sex: Female

DRUGS (5)
  1. XELODA [Suspect]
     Dosage: PATIENT RECEIVED SINGLE ADMINISTRATION.
     Route: 065
     Dates: start: 20071108, end: 20071108
  2. PANTOPRAZOLE SODIUM [Concomitant]
     Dosage: DRUG NAME: PANTOZOL 40.
  3. VOLTAREN [Concomitant]
  4. FENTANYL [Concomitant]
     Dosage: DRUG NAME: FENTANYL-PLASTER 100.
  5. CLEXANE [Concomitant]

REACTIONS (3)
  - BREAST CANCER METASTATIC [None]
  - FATIGUE [None]
  - PSYCHOTIC DISORDER [None]
